FAERS Safety Report 8063405-6 (Version None)
Quarter: 2012Q1

REPORT INFORMATION
  Report Type: 
  Country: None (occurrence: None)
  Receive Date: 20120117
  Receipt Date: 20120103
  Transmission Date: 20120608
  Serious: Yes (Death)
  Sender: FDA-Public Use
  Company Number: B0773426A

PATIENT
  Age: 62 Year
  Sex: Male

DRUGS (6)
  1. DEXTROMETHORPHAN HBR (FORMULATION UNKNOWN) (GENERIC) (DEXTROMETHORPAN) [Suspect]
  2. VENLAFAXINE HYDROCHLORIDE [Suspect]
     Dosage: ORAL
     Route: 048
  3. COLCHICINE [Suspect]
     Dosage: ORAL
     Route: 048
  4. CARVEDILOL [Suspect]
     Dosage: ORAL
     Route: 048
  5. NALTREXONE HYDROCHLORIDE [Suspect]
     Dosage: ORAL
     Route: 048
  6. DIPHENHYDRAMINE (FORMULATION UNKNOWN) (GENERIC) (DIPHENHYDRAMINE) [Suspect]

REACTIONS (1)
  - COMPLETED SUICIDE [None]
